FAERS Safety Report 25987991 (Version 1)
Quarter: 2025Q4

REPORT INFORMATION
  Report Type: Spontaneous
  Country: EU (occurrence: EU)
  Receive Date: 20251103
  Receipt Date: 20251103
  Transmission Date: 20260117
  Serious: Yes (Death, Other)
  Sender: BRISTOL-MYERS SQUIBB COMPANY
  Company Number: EU-BRISTOL-MYERS SQUIBB COMPANY-2025-146828

PATIENT
  Sex: Male

DRUGS (2)
  1. OPDIVO [Suspect]
     Active Substance: NIVOLUMAB
     Indication: Lung cancer metastatic
  2. YERVOY [Suspect]
     Active Substance: IPILIMUMAB
     Indication: Lung cancer metastatic

REACTIONS (4)
  - Diarrhoea [Unknown]
  - Sepsis [Fatal]
  - Immunodeficiency [Unknown]
  - Off label use [Unknown]
